FAERS Safety Report 21075149 (Version 1)
Quarter: 2022Q3

REPORT INFORMATION
  Report Type: Report from Study
  Country: US (occurrence: US)
  Receive Date: 20220713
  Receipt Date: 20220713
  Transmission Date: 20221027
  Serious: Yes (Hospitalization, Other)
  Sender: FDA-Public Use
  Company Number: US-BAYER-2022A031654

PATIENT
  Age: 65 Year
  Sex: Male
  Weight: 81.633 kg

DRUGS (7)
  1. ADEMPAS [Suspect]
     Active Substance: RIOCIGUAT
     Indication: Pulmonary arterial hypertension
     Dosage: 0.5 MG, TID
     Route: 048
     Dates: start: 20211110
  2. ADEMPAS [Suspect]
     Active Substance: RIOCIGUAT
     Indication: Pulmonary arterial hypertension
     Dosage: UNK
     Dates: start: 202202
  3. ADEMPAS [Suspect]
     Active Substance: RIOCIGUAT
     Indication: Pulmonary arterial hypertension
     Dosage: 0.5 UNK
     Route: 048
     Dates: start: 20220328
  4. ADEMPAS [Suspect]
     Active Substance: RIOCIGUAT
     Indication: Pulmonary arterial hypertension
     Dosage: 1 MG, TID
     Route: 048
     Dates: end: 20220615
  5. METOPROLOL [Concomitant]
     Active Substance: METOPROLOL
     Dosage: UNK
  6. AMIODARONE [Concomitant]
     Active Substance: AMIODARONE
     Dosage: UNK
     Dates: end: 20220610
  7. MULTAQ [Concomitant]
     Active Substance: DRONEDARONE
     Dosage: UNK
     Dates: start: 20220610

REACTIONS (5)
  - Pneumonia [None]
  - Blood pressure decreased [None]
  - Atrial fibrillation [None]
  - Blood pressure decreased [None]
  - Hospitalisation [Unknown]

NARRATIVE: CASE EVENT DATE: 20220610
